FAERS Safety Report 10309256 (Version 3)
Quarter: 2015Q1

REPORT INFORMATION
  Report Type: Spontaneous
  Country: US (occurrence: US)
  Receive Date: 20140716
  Receipt Date: 20150115
  Transmission Date: 20150720
  Serious: Yes (Hospitalization, Other)
  Sender: FDA-Public Use
  Company Number: US-GILEAD-2014-0108812

PATIENT
  Age: 61 Year
  Sex: Female

DRUGS (1)
  1. LETAIRIS [Suspect]
     Active Substance: AMBRISENTAN
     Indication: PULMONARY ARTERIAL HYPERTENSION
     Dosage: 5 MG, UNK
     Route: 065
     Dates: start: 20110311

REACTIONS (5)
  - Pneumonia [Unknown]
  - Renal cancer [Unknown]
  - Renal failure [Unknown]
  - Nephrectomy [Unknown]
  - Malaise [Unknown]
